FAERS Safety Report 10502310 (Version 2)
Quarter: 2016Q4

REPORT INFORMATION
  Report Type: Spontaneous
  Country: NO (occurrence: NO)
  Receive Date: 20141007
  Receipt Date: 20161109
  Transmission Date: 20170206
  Serious: Yes (Life-Threatening, Other)
  Sender: FDA-Public Use
  Company Number: NO-TEVA-513387ISR

PATIENT
  Age: 14 Year
  Sex: Male

DRUGS (1)
  1. METHOTREXATE (METHOTREXATE SODIUM) [Suspect]
     Active Substance: METHOTREXATE SODIUM
     Indication: LEUKAEMIA
     Dosage: 240 MG, SINGLE
     Route: 037
     Dates: start: 20140918, end: 20140918

REACTIONS (18)
  - Disorientation [Unknown]
  - Pyrexia [Unknown]
  - Seizure [Unknown]
  - Memory impairment [Unknown]
  - Unresponsive to stimuli [Recovering/Resolving]
  - Headache [Unknown]
  - Rash [Unknown]
  - Eczema [Unknown]
  - Anxiety [Unknown]
  - Dysphemia [Unknown]
  - Lethargy [Unknown]
  - Disturbance in attention [Unknown]
  - Dyslexia [Unknown]
  - Accidental overdose [Recovering/Resolving]
  - Asthenia [Unknown]
  - Depressed level of consciousness [Unknown]
  - Cognitive disorder [Unknown]
  - Reading disorder [Unknown]

NARRATIVE: CASE EVENT DATE: 20140918
